FAERS Safety Report 6750622-8 (Version None)
Quarter: 2010Q2

REPORT INFORMATION
  Report Type: 
  Country: None (occurrence: None)
  Receive Date: 20100527
  Receipt Date: 20100511
  Transmission Date: 20101027
  Serious: Yes (Hospitalization)
  Sender: FDA-Public Use
  Company Number: A-CH2009-28242

PATIENT
  Age: 71 Year
  Sex: Female
  Weight: 63 kg

DRUGS (12)
  1. TRACLEER [Suspect]
     Indication: SKIN ULCER
     Dosage: 125 MG, BID, ORAL
     Route: 048
     Dates: start: 20090901, end: 20090922
  2. MOTILIUM [Concomitant]
  3. NICARDIPINE HCL [Concomitant]
  4. CLONAZEPAM [Concomitant]
  5. NEXIUM [Concomitant]
  6. PREVISCAN (FLUINDIONE) [Concomitant]
  7. PREDNISONE [Concomitant]
  8. ATARAX (ALPRAZOLAM) [Concomitant]
  9. TARDYFERON (FERROUS SULFATE) [Concomitant]
  10. OROCAL D(3) (COLECALCIFEROL, CALCIUM CARBONATE) [Concomitant]
  11. ILOPROST (ILOPROST) [Concomitant]
  12. ZOLPIDEM TARTRATE [Concomitant]

REACTIONS (7)
  - ASTHENIA [None]
  - CYTOLYTIC HEPATITIS [None]
  - DRUG RASH WITH EOSINOPHILIA AND SYSTEMIC SYMPTOMS [None]
  - FACE OEDEMA [None]
  - HEADACHE [None]
  - PYREXIA [None]
  - SYSTEMIC INFLAMMATORY RESPONSE SYNDROME [None]
